FAERS Safety Report 18048802 (Version 1)
Quarter: 2020Q3

REPORT INFORMATION
  Report Type: Spontaneous
  Country: US (occurrence: US)
  Receive Date: 20200721
  Receipt Date: 20200721
  Transmission Date: 20201103
  Serious: Yes (Hospitalization)
  Sender: FDA-Public Use
  Company Number: None

PATIENT
  Age: 14 Year
  Sex: Male

DRUGS (2)
  1. IMATINIB 100MG [Suspect]
     Active Substance: IMATINIB
     Indication: LEUKAEMIA
     Route: 048
     Dates: start: 20200630
  2. IMATINIB 400MG [Suspect]
     Active Substance: IMATINIB
     Indication: LEUKAEMIA
     Route: 048
     Dates: start: 20200630

REACTIONS (1)
  - Infection [None]

NARRATIVE: CASE EVENT DATE: 20200717
